FAERS Safety Report 5691352-3 (Version None)
Quarter: 2008Q1

REPORT INFORMATION
  Report Type: 
  Country: None (occurrence: None)
  Receive Date: 20080331
  Receipt Date: 20080318
  Transmission Date: 20080703
  Serious: Yes (Hospitalization)
  Sender: FDA-Public Use
  Company Number: 232337J08USA

PATIENT
  Age: 51 Year
  Sex: Female

DRUGS (2)
  1. REBIF [Suspect]
     Indication: MULTIPLE SCLEROSIS
     Dosage: SEE IMAGE
     Route: 058
     Dates: start: 20071203, end: 20080128
  2. REBIF [Suspect]
     Indication: MULTIPLE SCLEROSIS
     Dosage: SEE IMAGE
     Route: 058
     Dates: start: 20080225

REACTIONS (5)
  - ANAEMIA [None]
  - BLOOD POTASSIUM DECREASED [None]
  - GASTRIC HAEMORRHAGE [None]
  - INFLUENZA LIKE ILLNESS [None]
  - INJECTION SITE IRRITATION [None]
